FAERS Safety Report 6011387-0 (Version None)
Quarter: 2008Q4

REPORT INFORMATION
  Report Type: 
  Country: None (occurrence: None)
  Receive Date: 20081217
  Receipt Date: 20081217
  Transmission Date: 20090506
  Serious: Yes (Hospitalization)
  Sender: FDA-Public Use
  Company Number: None

PATIENT
  Age: 53 Year
  Sex: Male
  Weight: 54 kg

DRUGS (3)
  1. GLIPIZIDE [Suspect]
     Indication: DIABETES MELLITUS
     Dosage: 10MG TWICE DAILY PO
     Route: 048
     Dates: start: 20081204, end: 20081213
  2. INSULIN N 20 UNITS [Suspect]
     Indication: DIABETES MELLITUS
     Dosage: 20 UNITS TWICE DAILY SQ
     Route: 058
     Dates: start: 20081204, end: 20081213
  3. . [Concomitant]

REACTIONS (4)
  - HYPERTENSION [None]
  - HYPOGLYCAEMIA [None]
  - POST PROCEDURAL CELLULITIS [None]
  - RENAL IMPAIRMENT [None]
